FAERS Safety Report 12759230 (Version 1)
Quarter: 2016Q3

REPORT INFORMATION
  Report Type: Spontaneous
  Country: US (occurrence: US)
  Receive Date: 20160916
  Receipt Date: 20160916
  Transmission Date: 20161109
  Serious: No
  Sender: FDA-Public Use
  Company Number: None

PATIENT
  Age: 64 Year
  Sex: Female

DRUGS (1)
  1. HUMIRA [Suspect]
     Active Substance: ADALIMUMAB
     Indication: HIDRADENITIS
     Route: 058
     Dates: start: 20160112

REACTIONS (4)
  - Peripheral swelling [None]
  - Skin swelling [None]
  - Erythema [None]
  - Diabetes mellitus [None]

NARRATIVE: CASE EVENT DATE: 20160609
